FAERS Safety Report 9013487 (Version 2)
Quarter: 2013Q1

REPORT INFORMATION
  Report Type: Spontaneous
  Country: AU (occurrence: AU)
  Receive Date: 20130114
  Receipt Date: 20130204
  Transmission Date: 20140127
  Serious: Yes (Other)
  Sender: FDA-Public Use
  Company Number: AU-ASTRAZENECA-2013SE00321

PATIENT
  Sex: Male

DRUGS (6)
  1. SYMBICORT [Suspect]
     Indication: ASTHMA
     Dosage: 200/6 MCG, 1-2 PUFFS BID
     Route: 055
     Dates: start: 2005
  2. SYMBICORT [Suspect]
     Indication: ASTHMA
     Dosage: 200/6 MCG, 1-2 PUFFS BID
     Route: 055
     Dates: start: 20121224, end: 20121226
  3. SYMBICORT [Suspect]
     Indication: ASTHMA
     Dosage: 200/6 MCG, 1-2 PUFFS BID
     Route: 055
     Dates: start: 20121227
  4. OLMETEC [Concomitant]
     Indication: BLOOD PRESSURE ABNORMAL
     Route: 048
     Dates: start: 2010
  5. MINIPRESS [Concomitant]
     Route: 048
     Dates: start: 2010
  6. ASMOL [Concomitant]
     Indication: ASTHMA
     Dosage: AS NEEDED 4-6 PUFFS

REACTIONS (4)
  - Chest discomfort [Recovered/Resolved]
  - Asthma [Recovered/Resolved]
  - Dysgeusia [Recovered/Resolved]
  - Circumstance or information capable of leading to medication error [Recovered/Resolved]
